FAERS Safety Report 9035863 (Version 1)
Quarter: 2013Q1

REPORT INFORMATION
  Report Type: Report from Study
  Country: US (occurrence: US)
  Receive Date: 20130129
  Receipt Date: 20130129
  Transmission Date: 20140127
  Serious: Yes (Other)
  Sender: FDA-Public Use
  Company Number: US-ABBOTT-12P-163-0921503-00

PATIENT
  Age: 19 Year
  Sex: Male
  Weight: 59.93 kg

DRUGS (1)
  1. HUMIRA 40 MG/0.8 ML PEN [Suspect]
     Indication: CROHN^S DISEASE
     Route: 058
     Dates: start: 201009

REACTIONS (10)
  - Ileostomy [Recovered/Resolved]
  - Pallor [Unknown]
  - Skin discolouration [Unknown]
  - Alopecia [Unknown]
  - Onychoclasis [Unknown]
  - Acne [Unknown]
  - Skin irritation [Unknown]
  - Lymphadenopathy [Unknown]
  - Fatigue [Unknown]
  - Impaired healing [Unknown]
